FAERS Safety Report 24553464 (Version 1)
Quarter: 2024Q4

REPORT INFORMATION
  Report Type: Report from Study
  Country: US (occurrence: US)
  Receive Date: 20241028
  Receipt Date: 20241028
  Transmission Date: 20250114
  Serious: No
  Sender: ROCHE
  Company Number: US-ROCHE-3430854

PATIENT
  Sex: Male

DRUGS (2)
  1. NUTROPIN AQ [Suspect]
     Active Substance: SOMATROPIN
     Indication: Hypopituitarism
     Dosage: NUSPIN 20 MG PEN, 2.6 MG DAILY
     Route: 058
     Dates: start: 202305
  2. NUTROPIN AQ [Suspect]
     Active Substance: SOMATROPIN
     Route: 058

REACTIONS (5)
  - Product storage error [Unknown]
  - Device defective [Unknown]
  - Drug delivery system malfunction [Unknown]
  - No adverse event [Unknown]
  - Product complaint [Unknown]
